FAERS Safety Report 16337676 (Version 3)
Quarter: 2020Q2

REPORT INFORMATION
  Report Type: Spontaneous
  Country: BE (occurrence: BE)
  Receive Date: 20190521
  Receipt Date: 20200429
  Transmission Date: 20200713
  Serious: Yes (Other)
  Sender: FDA-Public Use
  Company Number: PHHY2019BE113423

PATIENT
  Age: 70 Year
  Sex: Male

DRUGS (2)
  1. CIPROFLOXACIN SANDOZ [Suspect]
     Active Substance: CIPROFLOXACIN
     Indication: URINARY TRACT INFECTION
     Dosage: 2 DF, QD
     Route: 065
     Dates: start: 201903, end: 201904
  2. CIPROFLOXACIN SANDOZ [Suspect]
     Active Substance: CIPROFLOXACIN
     Dosage: 500 MG, UNKNOWN
     Route: 065

REACTIONS (5)
  - Fatigue [Unknown]
  - Myalgia [Not Recovered/Not Resolved]
  - Cataract [Recovering/Resolving]
  - Tendon pain [Not Recovered/Not Resolved]
  - Visual impairment [Not Recovered/Not Resolved]
